FAERS Safety Report 21956159 (Version 1)
Quarter: 2023Q1

REPORT INFORMATION
  Report Type: Other
  Country: CN (occurrence: None)
  Receive Date: 20230206
  Receipt Date: 20230206
  Transmission Date: 20230417
  Serious: Yes (Other)
  Sender: FDA-Public Use
  Company Number: CN-ROCHE-2047124

PATIENT
  Age: 58 Year
  Sex: Male
  Weight: 67 kg

DRUGS (2)
  1. AVASTIN [Suspect]
     Active Substance: BEVACIZUMAB
     Indication: Non-small cell lung cancer
     Dosage: FORM OF ADMIN: 100 MG, INJECTION
     Route: 041
     Dates: start: 20170210, end: 20220727
  2. AVASTIN [Suspect]
     Active Substance: BEVACIZUMAB
     Dosage: FORM OF ADMIN: 100 MG, INJECTION
     Route: 041

REACTIONS (12)
  - Myocardial infarction [Unknown]
  - Nasopharyngitis [Unknown]
  - Bronchitis [Unknown]
  - Productive cough [Unknown]
  - Tonsillitis [Unknown]
  - Mass [Not Recovered/Not Resolved]
  - Metastases to lung [Not Recovered/Not Resolved]
  - Nasopharyngitis [Unknown]
  - Hypertension [Recovered/Resolved]
  - General physical health deterioration [Recovered/Resolved]
  - Mass [Not Recovered/Not Resolved]
  - Metastases to pleura [Not Recovered/Not Resolved]

NARRATIVE: CASE EVENT DATE: 20220620
